FAERS Safety Report 10402381 (Version 1)
Quarter: 2014Q3

REPORT INFORMATION
  Report Type: Spontaneous
  Country: US (occurrence: None)
  Receive Date: 20140821
  Receipt Date: 20140821
  Transmission Date: 20150326
  Serious: Yes (Life-Threatening, Disabling)
  Sender: FDA-Public Use
  Company Number: None

PATIENT
  Age: 37 Year
  Sex: Female
  Weight: 65 kg

DRUGS (1)
  1. NUVARING [Suspect]
     Active Substance: ETHINYL ESTRADIOL\ETONOGESTREL
     Indication: CONTRACEPTION
     Dosage: 1 RING EVERY 4TH WEEK VAGINAL
     Route: 067
     Dates: start: 20130101, end: 20130815

REACTIONS (11)
  - Loss of employment [None]
  - Anxiety [None]
  - Skin disorder [None]
  - Vaginal infection [None]
  - Depression [None]
  - Breast mass [None]
  - Weight increased [None]
  - Vulvovaginal discomfort [None]
  - Chest discomfort [None]
  - Suicidal ideation [None]
  - Menstruation irregular [None]

NARRATIVE: CASE EVENT DATE: 20130420
